FAERS Safety Report 7690781-6 (Version None)
Quarter: 2011Q3

REPORT INFORMATION
  Report Type: 
  Country: None (occurrence: None)
  Receive Date: 20110812
  Receipt Date: 20110804
  Transmission Date: 20111222
  Serious: Yes (Disabling, Other)
  Sender: FDA-Public Use
  Company Number: ACO_22713_2010

PATIENT
  Age: 82 Year
  Sex: Male
  Weight: 88.4 kg

DRUGS (8)
  1. AMPYRA [Suspect]
     Indication: GAIT DISTURBANCE
     Dosage: 10 MG, QD, ORAL
     Route: 048
     Dates: start: 20100501, end: 20100701
  2. AMPYRA [Suspect]
     Indication: GAIT DISTURBANCE
     Dosage: 10 MG, QD, ORAL
     Route: 048
     Dates: start: 20100730, end: 20100802
  3. CRESTOR [Concomitant]
  4. PROPAFENONE HCL [Concomitant]
  5. VALSARTAN [Concomitant]
  6. MULTIVITAMINS (ASCORBIC ACID, ERGOCALCIFEROL, FOLIC ACID, NCOTINAMIDE, [Concomitant]
  7. COUMADIN [Concomitant]
  8. LOSARTAN POTASSIUM [Concomitant]

REACTIONS (10)
  - PARAESTHESIA [None]
  - GAIT DISTURBANCE [None]
  - PERIPHERAL COLDNESS [None]
  - HALLUCINATION, AUDITORY [None]
  - INAPPROPRIATE SCHEDULE OF DRUG ADMINISTRATION [None]
  - WEIGHT DECREASED [None]
  - INSOMNIA [None]
  - ABASIA [None]
  - MULTIPLE SCLEROSIS [None]
  - DRUG WITHDRAWAL SYNDROME [None]
